FAERS Safety Report 6407122-4 (Version None)
Quarter: 2009Q4

REPORT INFORMATION
  Report Type: 
  Country: None (occurrence: None)
  Receive Date: 20091014
  Receipt Date: 20090930
  Transmission Date: 20100525
  Serious: Yes (Hospitalization)
  Sender: FDA-Public Use
  Company Number: 8052267

PATIENT
  Sex: Female

DRUGS (2)
  1. LEVETIRACETAM [Suspect]
     Indication: EPILEPSY
     Dosage: 4000 MG
  2. CARBAMAZEPINE [Suspect]
     Indication: EPILEPSY
     Dosage: 1400 MG

REACTIONS (7)
  - CEREBRAL CALCIFICATION [None]
  - DIARRHOEA [None]
  - DIZZINESS [None]
  - GAIT DISTURBANCE [None]
  - GRAND MAL CONVULSION [None]
  - STATUS EPILEPTICUS [None]
  - VOMITING [None]
